FAERS Safety Report 22259010 (Version 1)
Quarter: 2023Q2

REPORT INFORMATION
  Report Type: Spontaneous
  Country: US (occurrence: US)
  Receive Date: 20230427
  Receipt Date: 20230427
  Transmission Date: 20230722
  Serious: No
  Sender: FDA-Public Use
  Company Number: US-MAYNE PHARMA-2022MYN001220

PATIENT
  Age: 71 Year
  Sex: Female

DRUGS (1)
  1. NORTRIPTYLINE HYDROCHLORIDE [Suspect]
     Active Substance: NORTRIPTYLINE HYDROCHLORIDE
     Indication: Fibromyalgia
     Dosage: TWO 50 MG CAPSULES AT NIGHT
     Route: 048

REACTIONS (5)
  - Pain [Unknown]
  - Neck pain [Unknown]
  - Headache [Unknown]
  - Nausea [Unknown]
  - Drug ineffective for unapproved indication [Unknown]
